FAERS Safety Report 7462641-7 (Version None)
Quarter: 2011Q2

REPORT INFORMATION
  Report Type: 
  Country: None (occurrence: None)
  Receive Date: 20110506
  Receipt Date: 20110504
  Transmission Date: 20111010
  Serious: Yes (Hospitalization)
  Sender: FDA-Public Use
  Company Number: PHHY2010BR66988

PATIENT
  Sex: Female

DRUGS (1)
  1. EXFORGE [Suspect]
     Dosage: 320 MG VALS AND 10 MG AMLO
     Route: 048

REACTIONS (2)
  - HAEMOGLOBIN DECREASED [None]
  - ANGIOPATHY [None]
